FAERS Safety Report 8358396-4 (Version None)
Quarter: 2012Q2

REPORT INFORMATION
  Report Type: 
  Country: None (occurrence: None)
  Receive Date: 20120514
  Receipt Date: 20111107
  Transmission Date: 20120825
  Serious: Yes (Other)
  Sender: FDA-Public Use
  Company Number: US-ALEXION-A201100548

PATIENT
  Sex: Female

DRUGS (13)
  1. TYLENOL (CAPLET) [Concomitant]
     Dosage: UNK, PRN
  2. METHADONE HCL [Concomitant]
     Dosage: 10 MG, QID
  3. COUMADIN [Concomitant]
     Dosage: UNK
  4. FOLIC ACID [Concomitant]
     Dosage: UNK
  5. SOLIRIS [Suspect]
     Dosage: 900 MG, Q2W
     Route: 042
     Dates: start: 20070620
  6. TRAZODONE HCL [Concomitant]
     Dosage: UNK, PRN
  7. MIRAPEX [Concomitant]
     Indication: RESTLESS LEGS SYNDROME
     Dosage: .25 MG, QD
  8. SOLIRIS [Suspect]
     Indication: PAROXYSMAL NOCTURNAL HAEMOGLOBINURIA
     Dosage: 600 MG, QW
     Route: 042
     Dates: start: 20070524, end: 20070601
  9. MULTI-VITAMIN [Concomitant]
     Dosage: UNK, QD
  10. CELEXA [Concomitant]
     Dosage: UNK
  11. AMITRIPTYLINE HCL [Concomitant]
     Dosage: 25 MG, QD
  12. POTASSIUM CHLORIDE [Concomitant]
     Dosage: 20 MEQ, BID
  13. FOSAMAX [Concomitant]
     Dosage: UNK, QWK

REACTIONS (3)
  - BASAL CELL CARCINOMA [None]
  - WOUND INFECTION [None]
  - PRECANCEROUS SKIN LESION [None]
